FAERS Safety Report 10177878 (Version 2)
Quarter: 2014Q4

REPORT INFORMATION
  Report Type: Spontaneous
  Country: US (occurrence: US)
  Receive Date: 20140516
  Receipt Date: 20141023
  Transmission Date: 20150528
  Serious: Yes (Hospitalization, Other)
  Sender: FDA-Public Use
  Company Number: US-GILEAD-2014-0102664

PATIENT
  Age: 83 Year
  Sex: Female

DRUGS (11)
  1. LETAIRIS [Suspect]
     Active Substance: AMBRISENTAN
     Indication: CORONARY ARTERY DISEASE
  2. LETAIRIS [Suspect]
     Active Substance: AMBRISENTAN
     Indication: OXYGEN SATURATION DECREASED
  3. LETAIRIS [Suspect]
     Active Substance: AMBRISENTAN
     Indication: ANAEMIA
  4. LETAIRIS [Suspect]
     Active Substance: AMBRISENTAN
     Indication: GASTROINTESTINAL HAEMORRHAGE
  5. LETAIRIS [Suspect]
     Active Substance: AMBRISENTAN
     Indication: PULMONARY FIBROSIS
  6. LETAIRIS [Suspect]
     Active Substance: AMBRISENTAN
     Indication: CARDIOMYOPATHY
  7. PROLIA [Concomitant]
     Active Substance: DENOSUMAB
  8. LETAIRIS [Suspect]
     Active Substance: AMBRISENTAN
     Indication: PULMONARY HYPERTENSION
     Dosage: 10 MG, QD
     Route: 065
     Dates: start: 20101007
  9. LETAIRIS [Suspect]
     Active Substance: AMBRISENTAN
     Indication: OBESITY
  10. LETAIRIS [Suspect]
     Active Substance: AMBRISENTAN
     Indication: SLEEP APNOEA SYNDROME
  11. LETAIRIS [Suspect]
     Active Substance: AMBRISENTAN
     Indication: CARDIAC FAILURE CONGESTIVE

REACTIONS (2)
  - Cardiac failure congestive [Not Recovered/Not Resolved]
  - Hypertension [Not Recovered/Not Resolved]

NARRATIVE: CASE EVENT DATE: 20140508
